FAERS Safety Report 9478524 (Version 2)
Quarter: 2013Q3

REPORT INFORMATION
  Report Type: Spontaneous
  Country: US (occurrence: US)
  Receive Date: 20130827
  Receipt Date: 20130827
  Transmission Date: 20140515
  Serious: Yes (Other)
  Sender: FDA-Public Use
  Company Number: US-SANOFI-AVENTIS-2013SA033469

PATIENT
  Age: 49 Year
  Sex: Female

DRUGS (1)
  1. AUBAGIO [Suspect]
     Indication: MULTIPLE SCLEROSIS
     Route: 048
     Dates: start: 20130318

REACTIONS (24)
  - Multiple sclerosis relapse [Unknown]
  - Defaecation urgency [Unknown]
  - Visual impairment [Unknown]
  - Hot flush [Unknown]
  - Headache [Unknown]
  - Head discomfort [Not Recovered/Not Resolved]
  - Fatigue [Not Recovered/Not Resolved]
  - Abdominal pain upper [Unknown]
  - Dizziness [Recovering/Resolving]
  - Sensation of heaviness [Not Recovered/Not Resolved]
  - Gait disturbance [Not Recovered/Not Resolved]
  - Sensory disturbance [Not Recovered/Not Resolved]
  - Dyspepsia [Recovering/Resolving]
  - Chills [Not Recovered/Not Resolved]
  - Fatigue [Unknown]
  - Palpitations [Unknown]
  - Heart rate abnormal [Unknown]
  - Flatulence [Recovered/Resolved]
  - Abdominal distension [Unknown]
  - Feeling abnormal [Recovering/Resolving]
  - Premenstrual syndrome [Recovering/Resolving]
  - Decreased appetite [Recovering/Resolving]
  - Nausea [Recovering/Resolving]
  - Diarrhoea [Recovering/Resolving]
